FAERS Safety Report 5081329-3 (Version None)
Quarter: 2006Q3

REPORT INFORMATION
  Report Type: 
  Country: None (occurrence: None)
  Receive Date: 20060814
  Receipt Date: 20060814
  Transmission Date: 20061208
  Serious: Yes (Hospitalization)
  Sender: FDA-Public Use
  Company Number: None

PATIENT
  Age: 73 Year
  Sex: Female

DRUGS (2)
  1. PHOSOPHOSODA GINGER LEMON [Suspect]
     Indication: COLONOSCOPY
     Dosage: 60 ML; X2; PO
     Route: 048
     Dates: start: 20040719
  2. PHOSOPHOSODA GINGER LEMON [Suspect]
     Indication: COLONOSCOPY
     Dosage: 60 ML; X1; PO
     Route: 048
     Dates: start: 20040720

REACTIONS (4)
  - DIALYSIS [None]
  - RENAL FAILURE ACUTE [None]
  - RENAL TRANSPLANT [None]
  - RENAL TUBULAR NECROSIS [None]
